FAERS Safety Report 4366984-5 (Version None)
Quarter: 2004Q2

REPORT INFORMATION
  Report Type: 
  Country: None (occurrence: None)
  Receive Date: 20040527
  Receipt Date: 20040527
  Transmission Date: 20050107
  Serious: Yes (Other)
  Sender: FDA-Public Use
  Company Number: None

PATIENT
  Age: 76 Year
  Sex: Female

DRUGS (1)
  1. GADOPENTETATE DIMEGLUMINE [Suspect]

REACTIONS (2)
  - SNEEZING [None]
  - URTICARIA [None]
